FAERS Safety Report 7562302-X (Version None)
Quarter: 2011Q2

REPORT INFORMATION
  Report Type: 
  Country: None (occurrence: None)
  Receive Date: 20110614
  Receipt Date: 20110531
  Transmission Date: 20111010
  Serious: Yes (Hospitalization)
  Sender: FDA-Public Use
  Company Number: DSU-2011-04017

PATIENT
  Age: 59 Year
  Sex: Male
  Weight: 86.1834 kg

DRUGS (2)
  1. FISH OIL [Concomitant]
  2. AZOR [Suspect]
     Indication: HYPERTENSION
     Dosage: 10/20MG (QD), PER ORAL; 10/40 (QD), PER ORAL
     Route: 048
     Dates: end: 20110501

REACTIONS (1)
  - JOINT INJURY [None]
